FAERS Safety Report 21560685 (Version 1)
Quarter: 2022Q4

REPORT INFORMATION
  Report Type: Spontaneous
  Country: GB (occurrence: GB)
  Receive Date: 20221107
  Receipt Date: 20221107
  Transmission Date: 20230113
  Serious: Yes (Hospitalization, Other)
  Sender: FDA-Public Use
  Company Number: GB-ABBVIE-20K-167-3397463-00

PATIENT
  Age: 16 Year
  Sex: Female
  Weight: 57.2 kg

DRUGS (18)
  1. METHOTREXATE [Suspect]
     Active Substance: METHOTREXATE
     Indication: Crohn^s disease
     Dosage: 22.5 MG, 1 DOSE WEEKLY, DRUG WITHDRAWN
     Route: 048
     Dates: start: 20121011, end: 20190614
  2. METHOTREXATE [Suspect]
     Active Substance: METHOTREXATE
     Dosage: 22.5 MG, 1 DOSE WEEKLY, DOSE NOT CHANGED
     Route: 048
     Dates: start: 20181018
  3. METHOTREXATE [Suspect]
     Active Substance: METHOTREXATE
     Dosage: 22.5 MG, 1 DOSE WEEKLY, DOSE NOT CHANGED
     Route: 048
     Dates: start: 20190628, end: 20200328
  4. METHOTREXATE [Suspect]
     Active Substance: METHOTREXATE
     Dosage: 22.5 MG, 1 DOSE WEEKLY, DOSE NOT CHANGED
     Route: 048
     Dates: start: 20200418
  5. AZATHIOPRINE [Suspect]
     Active Substance: AZATHIOPRINE
     Indication: Crohn^s disease
     Dosage: 100 MG, QD
     Route: 048
     Dates: start: 20121011, end: 20181011
  6. HUMIRA [Suspect]
     Active Substance: ADALIMUMAB
     Indication: Crohn^s disease
     Dosage: 40 MG, 1 DOSE 2 WEEKS
     Route: 058
     Dates: start: 20131209, end: 20180430
  7. HUMIRA [Suspect]
     Active Substance: ADALIMUMAB
     Dosage: 40 MG, 1 DOSE WEEKLY
     Route: 058
     Dates: start: 20180507, end: 20190325
  8. ONDANSETRON [Concomitant]
     Active Substance: ONDANSETRON
     Indication: Nausea
     Dosage: 16 MG, QD
     Route: 048
     Dates: start: 20190701
  9. ONDANSETRON [Concomitant]
     Active Substance: ONDANSETRON
     Indication: Vomiting
     Dosage: UNK
     Route: 065
  10. POTASSIUM BICARBONATE\SODIUM ALGINATE [Concomitant]
     Active Substance: POTASSIUM BICARBONATE\SODIUM ALGINATE
     Indication: Dyspepsia
     Dosage: UNK
     Route: 065
  11. POTASSIUM BICARBONATE\SODIUM ALGINATE [Concomitant]
     Active Substance: POTASSIUM BICARBONATE\SODIUM ALGINATE
     Indication: Gastrooesophageal reflux disease
     Dosage: 30 MG, QD
     Route: 048
     Dates: end: 20190802
  12. KETOCONAZOLE [Concomitant]
     Active Substance: KETOCONAZOLE
     Indication: Seborrhoeic dermatitis
     Dosage: 2 UNK, 1 DOSE WEEKLY, AS DIRECTED
     Route: 061
     Dates: start: 20191128
  13. NUTRISON MULTIFIBRE [Concomitant]
     Indication: Nutritional supplementation
     Dosage: 1800-2400 MLOVER 24 YEARS
     Route: 050
     Dates: start: 20190701
  14. ACETAMINOPHEN [Concomitant]
     Active Substance: ACETAMINOPHEN
     Indication: Analgesic therapy
     Dosage: 1 MG
     Route: 048
     Dates: start: 20190626
  15. FOLIC ACID [Concomitant]
     Active Substance: FOLIC ACID
     Indication: Vitamin supplementation
     Dosage: 5 MG, 1 DOSE WEEKLY
     Route: 048
     Dates: start: 20190629
  16. CHLORPHENIRAMINE MALEATE [Concomitant]
     Active Substance: CHLORPHENIRAMINE MALEATE
     Indication: Pruritus
     Dosage: 4 MG
     Route: 048
     Dates: start: 20190704
  17. FUSIDIC ACID [Concomitant]
     Active Substance: FUSIDIC ACID
     Indication: Skin infection
     Dosage: 6 %, QD
     Route: 061
     Dates: start: 20190716
  18. BETNOVATE [Concomitant]
     Active Substance: BETAMETHASONE
     Indication: Seborrhoeic dermatitis
     Dosage: ALTERNATE DAYS FOR TWO WEEKS, THEN ONCE WEEKLY(AS DIRECTED)
     Route: 061
     Dates: start: 20191128

REACTIONS (3)
  - Impetigo [Recovered/Resolved]
  - Constipation [Not Recovered/Not Resolved]
  - Crohn^s disease [Recovered/Resolved]

NARRATIVE: CASE EVENT DATE: 20200402
